FAERS Safety Report 25718902 (Version 1)
Quarter: 2025Q3

REPORT INFORMATION
  Report Type: Spontaneous
  Country: US (occurrence: US)
  Receive Date: 20250823
  Receipt Date: 20250823
  Transmission Date: 20251021
  Serious: No
  Sender: ELI LILLY AND COMPANY
  Company Number: US-ELI_LILLY_AND_COMPANY-US202508020246

PATIENT
  Age: 65 Year
  Sex: Male

DRUGS (4)
  1. ZEPBOUND [Suspect]
     Active Substance: TIRZEPATIDE
     Indication: Product used for unknown indication
     Route: 058
     Dates: start: 20250805
  2. ZEPBOUND [Suspect]
     Active Substance: TIRZEPATIDE
     Indication: Product used for unknown indication
     Route: 058
     Dates: start: 20250805
  3. ANDROGEL [Concomitant]
     Active Substance: TESTOSTERONE
     Indication: Hormone therapy
     Route: 065
  4. GABAPENTIN [Concomitant]
     Active Substance: GABAPENTIN
     Indication: Arthralgia
     Route: 065

REACTIONS (6)
  - Decreased appetite [Unknown]
  - Vision blurred [Unknown]
  - Cold sweat [Unknown]
  - Back pain [Unknown]
  - Flank pain [Unknown]
  - Diarrhoea [Unknown]
